FAERS Safety Report 5999919-X (Version None)
Quarter: 2008Q4

REPORT INFORMATION
  Report Type: 
  Country: None (occurrence: None)
  Receive Date: 20081215
  Receipt Date: 20081204
  Transmission Date: 20090506
  Serious: Yes (Hospitalization)
  Sender: FDA-Public Use
  Company Number: PHHY2008CR30842

PATIENT
  Age: 85 Year
  Sex: Male

DRUGS (5)
  1. DIOVAN HCT [Suspect]
     Indication: HYPERTENSION
     Dosage: 160/12.5MG PER DAY
     Route: 048
     Dates: start: 20081101
  2. DIGOXIN [Concomitant]
     Dosage: 3 DROPS PER DAY
     Route: 048
  3. ARTRULINE [Concomitant]
     Dosage: I TAB PER DAY
     Route: 048
  4. WARFARIN SODIUM [Concomitant]
     Dosage: 1/2 A TAB PER DAY
     Route: 048
  5. ACETYLCYSTEINE [Concomitant]
     Dosage: UNK

REACTIONS (2)
  - ARRHYTHMIA [None]
  - CARDIAC PACEMAKER INSERTION [None]
